FAERS Safety Report 6522811-9 (Version None)
Quarter: 2009Q4

REPORT INFORMATION
  Report Type: 
  Country: None (occurrence: None)
  Receive Date: 20091230
  Receipt Date: 20091214
  Transmission Date: 20100525
  Serious: Yes (Other)
  Sender: FDA-Public Use
  Company Number: US-BAYER-200943435NA

PATIENT
  Age: 56 Year
  Sex: Male
  Weight: 118 kg

DRUGS (9)
  1. MAGNEVIST [Suspect]
     Indication: NUCLEAR MAGNETIC RESONANCE IMAGING BRAIN
     Dosage: TOTAL DAILY DOSE: 20 ML
     Route: 042
     Dates: start: 20040527, end: 20040527
  2. UNSPECIFIED GADOLINIUM CONTRAST [Suspect]
     Indication: NUCLEAR MAGNETIC RESONANCE IMAGING BRAIN
     Dates: start: 20030403, end: 20030403
  3. UNSPECIFIED GADOLINIUM CONTRAST [Suspect]
     Dates: start: 20030410, end: 20030410
  4. UNSPECIFIED GADOLINIUM CONTRAST [Suspect]
     Dates: start: 20030411, end: 20030411
  5. UNSPECIFIED GADOLINIUM CONTRAST [Suspect]
     Dates: start: 20031001, end: 20031001
  6. LOTENSIN [Concomitant]
  7. LISINOPRIL [Concomitant]
  8. HYDROCHLOROTHIAZIDE [Concomitant]
  9. POTASSIUM [Concomitant]

REACTIONS (10)
  - ARTHRALGIA [None]
  - INJURY [None]
  - JOINT LOCK [None]
  - MUSCULOSKELETAL STIFFNESS [None]
  - NEPHROGENIC SYSTEMIC FIBROSIS [None]
  - PAIN IN EXTREMITY [None]
  - SKIN DISORDER [None]
  - SKIN HYPERPIGMENTATION [None]
  - SKIN INDURATION [None]
  - SKIN MASS [None]
